FAERS Safety Report 18038471 (Version 1)
Quarter: 2020Q3

REPORT INFORMATION
  Report Type: Spontaneous
  Country: US (occurrence: US)
  Receive Date: 20200717
  Receipt Date: 20200717
  Transmission Date: 20201103
  Serious: Yes (Other)
  Sender: FDA-Public Use
  Company Number: US-PFIZER INC-2020272973

PATIENT
  Age: 21 Year
  Sex: Female

DRUGS (3)
  1. BLEOMYCIN SULFATE [Suspect]
     Active Substance: BLEOMYCIN SULFATE
     Indication: OVARIAN DYSGERMINOMA STAGE III
     Dosage: 15 UNITS/M2 , CYCLIC (ON DAYS 1, 8, AND 15; EVERY 21 DAYS)
     Route: 030
  2. CISPLATIN. [Suspect]
     Active Substance: CISPLATIN
     Indication: OVARIAN DYSGERMINOMA STAGE III
     Dosage: 100 MG/M2, CYCLIC (ON DAY 1; EVERY 21 DAYS)
     Route: 042
  3. VINBLASTINE [Suspect]
     Active Substance: VINBLASTINE
     Indication: OVARIAN DYSGERMINOMA STAGE III
     Dosage: 18 MG/M2, CYCLIC (ON DAYS 1 AND 2)

REACTIONS (2)
  - Seizure [Recovered/Resolved]
  - Blindness cortical [Recovered/Resolved]
